FAERS Safety Report 7274082-6 (Version None)
Quarter: 2011Q1

REPORT INFORMATION
  Report Type: 
  Country: None (occurrence: None)
  Receive Date: 20110204
  Receipt Date: 20110124
  Transmission Date: 20110831
  Serious: Yes (Hospitalization)
  Sender: FDA-Public Use
  Company Number: US-BIOGENIDEC-2010BI034610

PATIENT
  Age: 42 Year
  Sex: Female
  Weight: 61 kg

DRUGS (1)
  1. TYSABRI [Suspect]
     Indication: MULTIPLE SCLEROSIS
     Route: 042
     Dates: start: 20100511, end: 20100930

REACTIONS (5)
  - FALL [None]
  - THORACIC VERTEBRAL FRACTURE [None]
  - RENAL INJURY [None]
  - URINARY BLADDER HAEMORRHAGE [None]
  - DRUG HYPERSENSITIVITY [None]
